FAERS Safety Report 24719956 (Version 1)
Quarter: 2024Q4

REPORT INFORMATION
  Report Type: Report from Study
  Country: US (occurrence: US)
  Receive Date: 20241211
  Receipt Date: 20241211
  Transmission Date: 20250115
  Serious: Yes (Hospitalization)
  Sender: ROCHE
  Company Number: US-ROCHE-10000149025

PATIENT
  Age: 42 Year
  Sex: Male
  Weight: 80.29 kg

DRUGS (2)
  1. RITUXAN [Suspect]
     Active Substance: RITUXIMAB
     Indication: Thrombotic microangiopathy
     Route: 050
     Dates: start: 20241101
  2. SOLIRIS [Concomitant]
     Active Substance: ECULIZUMAB
     Dates: start: 202411

REACTIONS (2)
  - Off label use [Unknown]
  - Abdominal pain [Recovering/Resolving]

NARRATIVE: CASE EVENT DATE: 20241101
